FAERS Safety Report 10313007 (Version 2)
Quarter: 2014Q3

REPORT INFORMATION
  Report Type: Spontaneous
  Country: US (occurrence: US)
  Receive Date: 20140718
  Receipt Date: 20140718
  Transmission Date: 20150326
  Serious: No
  Sender: FDA-Public Use
  Company Number: US-PFIZER INC-2014196224

PATIENT
  Age: 58 Year
  Sex: Female
  Weight: 86.62 kg

DRUGS (4)
  1. CHANTIX [Suspect]
     Active Substance: VARENICLINE TARTRATE
     Indication: SMOKING CESSATION THERAPY
     Dosage: UNK
  2. CHANTIX [Suspect]
     Active Substance: VARENICLINE TARTRATE
     Dosage: UNK
     Dates: start: 201407
  3. CHANTIX [Suspect]
     Active Substance: VARENICLINE TARTRATE
     Dosage: UNK, 2X/DAY
     Dates: start: 201407, end: 20140713
  4. KLONOPIN [Suspect]
     Active Substance: CLONAZEPAM
     Indication: ANXIETY
     Dosage: UNK
     Dates: start: 201407

REACTIONS (3)
  - Abnormal dreams [Recovered/Resolved]
  - Anxiety [Unknown]
  - Drug effect delayed [Unknown]

NARRATIVE: CASE EVENT DATE: 201407
